FAERS Safety Report 7549833-3 (Version None)
Quarter: 2011Q2

REPORT INFORMATION
  Report Type: 
  Country: None (occurrence: None)
  Receive Date: 20110615
  Receipt Date: 20101129
  Transmission Date: 20111010
  Serious: Yes (Death, Other)
  Sender: FDA-Public Use
  Company Number: PHHY2010DE81013

PATIENT
  Sex: Female
  Weight: 52 kg

DRUGS (10)
  1. TENORMIN [Concomitant]
     Indication: ATRIAL FIBRILLATION
     Dosage: 100 MG, QD
     Route: 048
  2. MOVIPREP [Concomitant]
  3. MARCUMAR [Concomitant]
     Dates: start: 20081201
  4. FEMARA [Suspect]
     Indication: BREAST CANCER
     Dosage: 2.5 MG, QD
     Route: 048
     Dates: start: 20090107
  5. HYDROCHLOROTHIAZIDE [Concomitant]
     Dosage: 25 MG, UNK
  6. PANTOPRAZOLE [Concomitant]
     Dosage: 40 MG, UNK
  7. TORSEMIDE [Concomitant]
     Indication: ATRIAL FIBRILLATION
     Dosage: 10 MG, QD
     Route: 048
  8. MORONAL [Concomitant]
  9. ASPIRIN [Concomitant]
     Indication: ATRIAL FIBRILLATION
     Dosage: 100 MG, QD
     Route: 048
  10. DIGIMERCK [Concomitant]
     Indication: ATRIAL FIBRILLATION
     Dosage: 0.1 MG, QD
     Route: 048

REACTIONS (2)
  - GENERAL PHYSICAL HEALTH DETERIORATION [None]
  - PNEUMONIA [None]
